FAERS Safety Report 7268380-X (Version None)
Quarter: 2011Q1

REPORT INFORMATION
  Report Type: 
  Country: None (occurrence: None)
  Receive Date: 20110121
  Receipt Date: 20110111
  Transmission Date: 20110831
  Serious: Yes (Death)
  Sender: FDA-Public Use
  Company Number: 2011MA000273

PATIENT
  Age: 48 Year
  Sex: Male

DRUGS (4)
  1. TRAMADOL HYDROCHLORIDE [Suspect]
  2. PREV MEDS [Concomitant]
  3. CON MEDS [Concomitant]
  4. CHLOROQUINE PHOSPHATE [Suspect]
     Dosage: PO
     Route: 048

REACTIONS (1)
  - COMPLETED SUICIDE [None]
